FAERS Safety Report 15857593 (Version 2)
Quarter: 2022Q2

REPORT INFORMATION
  Report Type: Spontaneous
  Country: US (occurrence: US)
  Receive Date: 20190123
  Receipt Date: 20220422
  Transmission Date: 20220721
  Serious: Yes (Other)
  Sender: FDA-Public Use
  Company Number: US-TEVA-2019-US-1001446

PATIENT
  Age: 21 Year
  Sex: Female

DRUGS (16)
  1. VINCRISTINE [Suspect]
     Active Substance: VINCRISTINE
     Indication: Acute lymphocytic leukaemia
     Dosage: AS A PART OF INDUCTION CALBG 10403 REGIMEN
     Route: 065
  2. VINCRISTINE [Suspect]
     Active Substance: VINCRISTINE
     Indication: Acute lymphocytic leukaemia
     Dosage: RECEIVED ALSO AS A PART OF CONSOLIDATION CHEMOTHERAPY CALBG 10403 REGIMEN
     Route: 065
  3. PREDNISONE [Suspect]
     Active Substance: PREDNISONE
     Indication: Acute lymphocytic leukaemia
     Dosage: 60 MG/M2 DAILY; DIVIDED IN TWO DOSES; PART OF INDUCTION CALBG 10403 REGIMEN
     Route: 065
  4. CYTARABINE [Suspect]
     Active Substance: CYTARABINE
     Indication: Acute lymphocytic leukaemia
     Dosage: AS A PART OF INDUCTION CALBG 10403 REGIMEN
     Route: 037
  5. CYTARABINE [Suspect]
     Active Substance: CYTARABINE
     Indication: Acute lymphocytic leukaemia
     Dosage: AS A PART OF CONSOLIDATION AND DELAYED INTENSIFICATION CHEMOTHERAPY CALBG 10403 REGIMEN
     Route: 065
  6. DEXAMETHASONE [Suspect]
     Active Substance: DEXAMETHASONE
     Indication: Acute lymphocytic leukaemia
     Dosage: AS A PART OF DELAYED INTENSIFICATION CHEMOTHERAPY CALBG 10403 REGIMEN
     Route: 065
  7. METHOTREXATE [Suspect]
     Active Substance: METHOTREXATE
     Indication: Acute lymphocytic leukaemia
     Dosage: AS A PART OF CONSOLIDATION AND DELAYED INTENSIFICATION CHEMOTHERAPY CALBG 10403 REGIMEN
     Route: 065
  8. DOXORUBICIN [Suspect]
     Active Substance: DOXORUBICIN
     Indication: Acute lymphocytic leukaemia
     Dosage: AS A PART OF DELAYED INTENSIFICATION CHEMOTHERAPY CALBG 10403 REGIMEN
     Route: 065
  9. RITUXIMAB [Suspect]
     Active Substance: RITUXIMAB
     Indication: Acute lymphocytic leukaemia
     Dosage: AS A PART OF INDUCTION CALBG 10403 REGIMEN
     Route: 065
  10. DARBEPOETIN ALFA [Suspect]
     Active Substance: DARBEPOETIN ALFA
     Dosage: 14.2857 MICROGRAM DAILY; AS A PART OF INDUCTION CHEMOTHERAPY ACCORDING TO CALGB 10403 PROTOCOL
     Route: 065
  11. PEGASPARGASE [Suspect]
     Active Substance: PEGASPARGASE
     Indication: Acute lymphocytic leukaemia
     Dosage: 2000UNIT/M2; ADDED ON DAY 11 TO THE INDUCTION CHEMOTHERAPY; AS A PART OF INDUCTION CALBG 10403 RE...
     Route: 065
  12. PEGASPARGASE [Suspect]
     Active Substance: PEGASPARGASE
     Indication: Acute lymphocytic leukaemia
     Dosage: AS A PART OF CONSOLIDATION CALBG 10403 REGIMEN
     Route: 065
  13. PEGASPARGASE [Suspect]
     Active Substance: PEGASPARGASE
     Indication: Acute lymphocytic leukaemia
     Dosage: AS A PART OF DELAYED INTENSIFICATION CHEMOTHERAPY CALBG 10403 REGIMEN
     Route: 065
  14. CYCLOPHOSPHAMIDE [Suspect]
     Active Substance: CYCLOPHOSPHAMIDE
     Indication: Acute lymphocytic leukaemia
     Dosage: AS A PART OF CONSOLIDATION AND DELAYED INTENSIFICATION CHEMOTHERAPY CALBG 10403 REGIMEN
     Route: 065
  15. MERCAPTOPURINE [Suspect]
     Active Substance: MERCAPTOPURINE
     Indication: Acute lymphocytic leukaemia
     Dosage: AS A PART OF CONSOLIDATION CHEMOTHERAPY CALBG 10403 REGIMEN
     Route: 065
  16. THIOGUANINE ANHYDROUS [Suspect]
     Active Substance: THIOGUANINE ANHYDROUS
     Indication: Acute lymphocytic leukaemia
     Dosage: AS A PART OF DELAYED INTENSIFICATION CHEMOTHERAPY CALBG 10403 REGIMEN
     Route: 065

REACTIONS (7)
  - Anaemia [Unknown]
  - Thrombocytopenia [Recovering/Resolving]
  - Drug-induced liver injury [Unknown]
  - Deep vein thrombosis [Recovered/Resolved]
  - Peroneal nerve palsy [Unknown]
  - Febrile neutropenia [Unknown]
  - Neuropathy peripheral [Unknown]
